FAERS Safety Report 13448146 (Version 2)
Quarter: 2017Q2

REPORT INFORMATION
  Report Type: Report from Study
  Country: FR (occurrence: FR)
  Receive Date: 20170417
  Receipt Date: 20170420
  Transmission Date: 20170830
  Serious: Yes (Hospitalization)
  Sender: FDA-Public Use
  Company Number: FR-PFIZER INC-2017166038

PATIENT
  Sex: Female

DRUGS (2)
  1. MISOPROSTOL. [Suspect]
     Active Substance: MISOPROSTOL
     Dosage: UNK
  2. MIFEGYNE [Suspect]
     Active Substance: MIFEPRISTONE
     Dosage: UNK

REACTIONS (2)
  - Metrorrhagia [Unknown]
  - Abortion induced incomplete [Unknown]
